FAERS Safety Report 7769461-4 (Version None)
Quarter: 2011Q3

REPORT INFORMATION
  Report Type: 
  Country: None (occurrence: None)
  Receive Date: 20110922
  Receipt Date: 20100811
  Transmission Date: 20111222
  Serious: No
  Sender: FDA-Public Use
  Company Number: US-ASTRAZENECA-2008UW13960

PATIENT
  Age: 602 Month
  Sex: Male
  Weight: 90.7 kg

DRUGS (13)
  1. SEROQUEL [Suspect]
     Indication: BIPOLAR DISORDER
     Route: 048
     Dates: start: 20011221, end: 20060511
  2. ZYPREXA [Concomitant]
     Indication: BIPOLAR DISORDER
     Dosage: 10-40 MG
     Dates: start: 20021028, end: 20040610
  3. SEROQUEL [Suspect]
     Indication: DEPRESSION
     Route: 048
     Dates: start: 20011221, end: 20060511
  4. CLOZAPINE [Concomitant]
  5. SEROQUEL [Suspect]
     Route: 048
     Dates: start: 20020201, end: 20050101
  6. SEROQUEL [Suspect]
     Route: 048
     Dates: start: 20020201, end: 20050101
  7. ZYPREXA [Concomitant]
     Indication: DEPRESSION
     Dosage: 10-40 MG
     Dates: start: 20021028, end: 20040610
  8. GEODON [Concomitant]
  9. ABILIFY [Concomitant]
     Dates: start: 20040610, end: 20070712
  10. NAVANE [Concomitant]
  11. SEROQUEL [Suspect]
     Indication: SCHIZOPHRENIA
     Route: 048
     Dates: start: 20011221, end: 20060511
  12. SEROQUEL [Suspect]
     Route: 048
     Dates: start: 20020201, end: 20050101
  13. ZYPREXA [Concomitant]
     Indication: SCHIZOPHRENIA
     Dosage: 10-40 MG
     Dates: start: 20021028, end: 20040610

REACTIONS (6)
  - BLOOD CHOLESTEROL INCREASED [None]
  - MALAISE [None]
  - HYPERLIPIDAEMIA [None]
  - TYPE 2 DIABETES MELLITUS [None]
  - DRUG INEFFECTIVE [None]
  - DIABETIC COMPLICATION [None]
